FAERS Safety Report 16797716 (Version 2)
Quarter: 2025Q3

REPORT INFORMATION
  Report Type: Report from Study
  Country: EU (occurrence: EU)
  Receive Date: 20190912
  Receipt Date: 20250709
  Transmission Date: 20251021
  Serious: Yes (Congenital Anomaly, Other)
  Sender: AUROBINDO
  Company Number: EU-AUROBINDO-AUR-APL-2019-059540

PATIENT

DRUGS (6)
  1. OXOMEMAZINE [Suspect]
     Active Substance: OXOMEMAZINE
     Indication: Product used for unknown indication
     Route: 064
  2. DOMPERIDONE [Suspect]
     Active Substance: DOMPERIDONE
     Indication: Product used for unknown indication
     Route: 064
  3. RANITIDINE [Suspect]
     Active Substance: RANITIDINE
     Indication: Product used for unknown indication
     Route: 064
  4. CETIRIZINE [Suspect]
     Active Substance: CETIRIZINE HYDROCHLORIDE
     Indication: Product used for unknown indication
     Route: 064
  5. CHLORPROMAZINE [Suspect]
     Active Substance: CHLORPROMAZINE
     Indication: Product used for unknown indication
     Route: 064
  6. METOPIMAZINE [Suspect]
     Active Substance: METOPIMAZINE
     Indication: Product used for unknown indication
     Route: 064

REACTIONS (6)
  - Apgar score low [Unknown]
  - Premature baby [Unknown]
  - Congenital anomaly [Unknown]
  - Foetal exposure during pregnancy [Unknown]
  - Psychomotor skills impaired [Unknown]
  - Adverse event [Unknown]
